FAERS Safety Report 7889598-9 (Version None)
Quarter: 2011Q4

REPORT INFORMATION
  Report Type: 
  Country: None (occurrence: None)
  Receive Date: 20111103
  Receipt Date: 20110714
  Transmission Date: 20120403
  Serious: No
  Sender: FDA-Public Use
  Company Number: US-BRISTOL-MYERS SQUIBB COMPANY-15902455

PATIENT
  Age: 37 Year
  Sex: Female

DRUGS (2)
  1. KENALOG-40 [Suspect]
     Dosage: THERAPY DATES:JAN 2011
     Dates: start: 20100401
  2. PRISTIQ [Concomitant]

REACTIONS (1)
  - INJECTION SITE ATROPHY [None]
